FAERS Safety Report 11265735 (Version 1)
Quarter: 2015Q3

REPORT INFORMATION
  Report Type: Other
  Country: DK (occurrence: DK)
  Receive Date: 20150713
  Receipt Date: 20150713
  Transmission Date: 20151125
  Serious: Yes (Hospitalization)
  Sender: FDA-Public Use
  Company Number: DK-MYLANLABS-2015M1022034

PATIENT

DRUGS (1)
  1. TAMOXIFEN MYLAN 20 MG TABLETTER [Suspect]
     Active Substance: TAMOXIFEN
     Indication: ANTIOESTROGEN THERAPY
     Dosage: 20 MG, QD (STYRKE: 20 MG)
     Route: 048
     Dates: start: 201404, end: 201407

REACTIONS (3)
  - Uterine prolapse [Recovered/Resolved]
  - Hysterectomy [Recovered/Resolved]
  - Lichen sclerosus [Unknown]

NARRATIVE: CASE EVENT DATE: 2015
